FAERS Safety Report 16725922 (Version 2)
Quarter: 2019Q3

REPORT INFORMATION
  Report Type: Spontaneous
  Country: CA (occurrence: CA)
  Receive Date: 20190821
  Receipt Date: 20190906
  Transmission Date: 20191005
  Serious: Yes (Disabling, Other)
  Sender: FDA-Public Use
  Company Number: CA-TEVA-2019-CA-1090156

PATIENT
  Age: 77 Year
  Sex: Female
  Weight: 57 kg

DRUGS (4)
  1. RAMIPRIL. [Concomitant]
     Active Substance: RAMIPRIL
  2. SYNTHROID [Concomitant]
     Active Substance: LEVOTHYROXINE SODIUM
     Dosage: 1 DOSAGE FORMS DAILY;
  3. TEVA-ATORVASTATIN [Suspect]
     Active Substance: ATORVASTATIN
     Indication: HYPERCHOLESTEROLAEMIA
     Dates: start: 20170508, end: 20181024
  4. SYNTHROID [Concomitant]
     Active Substance: LEVOTHYROXINE SODIUM
     Dosage: 1 DOSAGE FORMS DAILY;

REACTIONS (16)
  - Night sweats [Unknown]
  - Pain in extremity [Unknown]
  - Asthenia [Unknown]
  - Generalised oedema [Unknown]
  - Visual impairment [Unknown]
  - Sensory loss [Unknown]
  - Fatigue [Unknown]
  - Intraocular pressure increased [Unknown]
  - Myalgia [Unknown]
  - Pain [Unknown]
  - Urine odour abnormal [Unknown]
  - Hypertension [Unknown]
  - Palpitations [Unknown]
  - Glaucoma [Unknown]
  - Muscular weakness [Unknown]
  - Sleep disorder [Unknown]

NARRATIVE: CASE EVENT DATE: 2017
